FAERS Safety Report 4888558-X (Version None)
Quarter: 2005Q4

REPORT INFORMATION
  Report Type: 
  Country: None (occurrence: None)
  Receive Date: 20051215
  Receipt Date: 20050425
  Transmission Date: 20060501
  Serious: Yes (Hospitalization, Other)
  Sender: FDA-Public Use
  Company Number: 2005064893

PATIENT
  Age: 86 Year
  Sex: Female
  Weight: 56.6996 kg

DRUGS (7)
  1. BEXTRA [Suspect]
     Indication: PAIN
     Dosage: DAILY, ORAL
     Route: 048
     Dates: start: 20050324, end: 20050325
  2. PROPACET 100 [Concomitant]
  3. GLYCERYL TRINITRATE (GLYCERYL TRINITRATE) [Concomitant]
  4. MECLOZINE (MECLOZINE) [Concomitant]
  5. SIMVASTATIN [Concomitant]
  6. TELMISARTAN (TELMISARTAN) [Concomitant]
  7. CENTRUM (MINERALS NOS, VITAMINS NOS) [Concomitant]

REACTIONS (4)
  - ABDOMINAL TENDERNESS [None]
  - DIARRHOEA [None]
  - HYPERTENSION [None]
  - VOMITING [None]
